FAERS Safety Report 22018350 (Version 2)
Quarter: 2023Q1

REPORT INFORMATION
  Report Type: Spontaneous
  Country: US (occurrence: US)
  Receive Date: 20230221
  Receipt Date: 20230224
  Transmission Date: 20230417
  Serious: No
  Sender: FDA-Public Use
  Company Number: US-002147023-NVSC2023US038853

PATIENT
  Age: 60 Year
  Sex: Female

DRUGS (1)
  1. ALBUTEROL SULFATE [Suspect]
     Active Substance: ALBUTEROL SULFATE
     Indication: Pain
     Route: 065

REACTIONS (5)
  - Dyskinesia [Unknown]
  - Freezing phenomenon [Unknown]
  - Palpitations [Unknown]
  - Peripheral swelling [Unknown]
  - Off label use [Unknown]
